FAERS Safety Report 7597180-6 (Version None)
Quarter: 2011Q3

REPORT INFORMATION
  Report Type: 
  Country: None (occurrence: None)
  Receive Date: 20110708
  Receipt Date: 20100715
  Transmission Date: 20111222
  Serious: No
  Sender: FDA-Public Use
  Company Number: US-GLAXOSMITHKLINE-A0870664A

PATIENT
  Age: 74 Year
  Sex: Female
  Weight: 78.6 kg

DRUGS (8)
  1. AMLODIPINE [Concomitant]
  2. DIGOXIN [Concomitant]
  3. HYZAAR [Concomitant]
  4. ATIVAN [Concomitant]
  5. OMEPRAZOLE [Concomitant]
  6. DIOVAN [Concomitant]
  7. FLOVENT [Suspect]
     Indication: OXYGEN SATURATION DECREASED
     Dosage: 2PUFF TWICE PER DAY
     Route: 055
     Dates: start: 20100101
  8. LEVOTHYROXINE SODIUM [Concomitant]

REACTIONS (2)
  - APHONIA [None]
  - PRODUCT QUALITY ISSUE [None]
